FAERS Safety Report 4600926-X (Version None)
Quarter: 2005Q1

REPORT INFORMATION
  Report Type: 
  Country: None (occurrence: None)
  Receive Date: 20050127
  Receipt Date: 20041110
  Transmission Date: 20050727
  Serious: No
  Sender: FDA-Public Use
  Company Number: USA041082072

PATIENT
  Age: 10 Year
  Sex: Female
  Weight: 46 kg

DRUGS (2)
  1. STRATTERA [Suspect]
     Indication: ATTENTION DEFICIT/HYPERACTIVITY DISORDER
     Dosage: 40 MG DAY
     Dates: start: 20041022
  2. CLONIDINE [Concomitant]

REACTIONS (4)
  - MYDRIASIS [None]
  - NAUSEA [None]
  - TREMOR [None]
  - VISION BLURRED [None]
